FAERS Safety Report 5046664-3 (Version None)
Quarter: 2006Q3

REPORT INFORMATION
  Report Type: 
  Country: None (occurrence: None)
  Receive Date: 20060707
  Receipt Date: 20060707
  Transmission Date: 20061208
  Serious: Yes (Hospitalization)
  Sender: FDA-Public Use
  Company Number: None

PATIENT
  Age: 59 Year
  Sex: Male

DRUGS (12)
  1. WARFARIN SODIUM [Suspect]
     Indication: AORTIC VALVE REPLACEMENT
     Dosage: 7.5 MG QD PO
     Route: 048
     Dates: start: 20050525, end: 20060415
  2. OMEPRAZOLE [Concomitant]
  3. ARANESP [Concomitant]
  4. HYDRALAZINE HCL [Concomitant]
  5. FESO4 [Concomitant]
  6. ZOCOR [Concomitant]
  7. NITROGLYCERIN [Concomitant]
  8. FLONASE [Concomitant]
  9. COMBIVENT [Concomitant]
  10. COLACE [Concomitant]
  11. LASIX [Concomitant]
  12. ASPIRIN [Concomitant]

REACTIONS (4)
  - CONDITION AGGRAVATED [None]
  - EPISTAXIS [None]
  - HAEMATOCRIT DECREASED [None]
  - INTERNATIONAL NORMALISED RATIO DECREASED [None]
